FAERS Safety Report 13701061 (Version 1)
Quarter: 2017Q2

REPORT INFORMATION
  Report Type: Spontaneous
  Country: US (occurrence: US)
  Receive Date: 20170628
  Receipt Date: 20170628
  Transmission Date: 20170830
  Serious: Yes (Other)
  Sender: FDA-Public Use
  Company Number: None

PATIENT
  Age: 65 Year
  Sex: Female
  Weight: 113.8 kg

DRUGS (5)
  1. METRONIDAZOLE 500 MG TAB [Suspect]
     Active Substance: METRONIDAZOLE
     Indication: DIVERTICULITIS
     Dosage: ?          OTHER STRENGTH:MG;QUANTITY:42 TABLET(S);?
     Route: 048
     Dates: start: 20170625, end: 20170626
  2. ANORO ELLIPTA [Concomitant]
     Active Substance: UMECLIDINIUM BROMIDE\VILANTEROL TRIFENATATE
  3. VENTOLIN [Concomitant]
     Active Substance: ALBUTEROL SULFATE
  4. PROTONIX [Concomitant]
     Active Substance: PANTOPRAZOLE SODIUM
  5. VITAMION A [Concomitant]

REACTIONS (4)
  - Choking [None]
  - Product shape issue [None]
  - Product size issue [None]
  - Product use complaint [None]

NARRATIVE: CASE EVENT DATE: 20170625
